FAERS Safety Report 23319635 (Version 1)
Quarter: 2023Q4

REPORT INFORMATION
  Report Type: Spontaneous
  Country: JP (occurrence: JP)
  Receive Date: 20231220
  Receipt Date: 20231220
  Transmission Date: 20240110
  Serious: Yes (Death, Other)
  Sender: FDA-Public Use
  Company Number: JP-TAKEDA-2023TJP016873

PATIENT
  Age: 60 Year
  Sex: Male
  Weight: 90.2 kg

DRUGS (1)
  1. CABOMETYX [Suspect]
     Active Substance: CABOZANTINIB S-MALATE
     Indication: Hepatocellular carcinoma
     Dosage: 20 MG
     Route: 065
     Dates: start: 20230412, end: 20230606

REACTIONS (1)
  - Death [Fatal]

NARRATIVE: CASE EVENT DATE: 20230722
